FAERS Safety Report 11146467 (Version 2)
Quarter: 2015Q2

REPORT INFORMATION
  Report Type: Spontaneous
  Country: DE (occurrence: None)
  Receive Date: 20150526
  Receipt Date: 20150624
  Transmission Date: 20150821
  Serious: No
  Sender: FDA-Public Use
  Company Number: DE-LHC-2015055

PATIENT
  Sex: Female

DRUGS (1)
  1. CONOXIA (OXYGEN) [Suspect]
     Active Substance: OXYGEN

REACTIONS (3)
  - Thermal burn [None]
  - Device malfunction [None]
  - Injury associated with device [None]

NARRATIVE: CASE EVENT DATE: 20150518
